FAERS Safety Report 16189543 (Version 3)
Quarter: 2019Q2

REPORT INFORMATION
  Report Type: Spontaneous
  Country: US (occurrence: US)
  Receive Date: 20190412
  Receipt Date: 20190628
  Transmission Date: 20190711
  Serious: No
  Sender: FDA-Public Use
  Company Number: US-PFIZER INC-2019152658

PATIENT
  Age: 33 Year
  Sex: Female

DRUGS (3)
  1. XELJANZ [Suspect]
     Active Substance: TOFACITINIB CITRATE
     Indication: COLITIS ULCERATIVE
     Dosage: 10 MG, 2X/DAY
     Route: 048
     Dates: start: 20181206
  2. XELJANZ [Suspect]
     Active Substance: TOFACITINIB CITRATE
     Indication: COLITIS ULCERATIVE
  3. XELJANZ [Suspect]
     Active Substance: TOFACITINIB CITRATE
     Indication: PSORIASIS

REACTIONS (6)
  - Therapeutic response unexpected [Unknown]
  - Peripheral swelling [Recovered/Resolved]
  - Pain [Unknown]
  - Pain of skin [Recovered/Resolved]
  - Pre-existing condition improved [Unknown]
  - Skin tightness [Recovered/Resolved]

NARRATIVE: CASE EVENT DATE: 20190305
